FAERS Safety Report 4696398-X (Version None)
Quarter: 2005Q2

REPORT INFORMATION
  Report Type: 
  Country: None (occurrence: None)
  Receive Date: 20050615
  Receipt Date: 20050316
  Transmission Date: 20051028
  Serious: Yes (Hospitalization)
  Sender: FDA-Public Use
  Company Number: 2005PL000044

PATIENT
  Age: 54 Year
  Sex: Female
  Weight: 117.9352 kg

DRUGS (1)
  1. IMURAN [Suspect]
     Indication: COLITIS ULCERATIVE
     Dosage: 100 MG;QD; PO
     Route: 048
     Dates: start: 20040901, end: 20041011

REACTIONS (2)
  - ABDOMINAL PAIN [None]
  - PANCREATITIS [None]
